FAERS Safety Report 4518585-3 (Version None)
Quarter: 2004Q4

REPORT INFORMATION
  Report Type: 
  Country: None (occurrence: None)
  Receive Date: 20041201
  Receipt Date: 20041119
  Transmission Date: 20050328
  Serious: Yes (Other)
  Sender: FDA-Public Use
  Company Number: 2004096631

PATIENT
  Age: 83 Year
  Sex: Female
  Weight: 82.5547 kg

DRUGS (9)
  1. NORVASC [Suspect]
     Indication: HYPERTENSION
     Dosage: 10 MG (10 MG, 1 IN 1 D), ORAL
     Route: 048
     Dates: start: 20040101
  2. BEXTRA [Suspect]
     Indication: ARTHRITIS
     Dosage: 10 MG (10 MG, 1 IN 1 D), ORAL
     Route: 048
     Dates: start: 20041001
  3. LEVOTHYROXINE SODIUM [Concomitant]
  4. POTASSIUM CHLORIDE [Concomitant]
  5. TORSEMIDE [Concomitant]
  6. TOCOPHEROL CONCENTRATE CAP [Concomitant]
  7. OLMESARTAN MEDOXOMIL (OLMESARTAN MEDOXOMIL) [Concomitant]
  8. ASPIRIN [Concomitant]
  9. CENTRUM (MINERALS NOS, VITAMINS NOS) [Concomitant]

REACTIONS (6)
  - ARTHRITIS [None]
  - COUGH [None]
  - DRY MOUTH [None]
  - EYE SWELLING [None]
  - INCREASED UPPER AIRWAY SECRETION [None]
  - SPINAL COLUMN STENOSIS [None]
